FAERS Safety Report 24625510 (Version 2)
Quarter: 2024Q4

REPORT INFORMATION
  Report Type: Report from Study
  Country: US (occurrence: US)
  Receive Date: 20241115
  Receipt Date: 20241203
  Transmission Date: 20250115
  Serious: Yes (Hospitalization, Other)
  Sender: ABBVIE
  Company Number: US-ABBVIE-6000464

PATIENT
  Age: 75 Year
  Sex: Female
  Weight: 55.792 kg

DRUGS (4)
  1. HUMIRA [Suspect]
     Active Substance: ADALIMUMAB
     Indication: Crohn^s disease
     Route: 058
     Dates: start: 2012
  2. HUMIRA [Suspect]
     Active Substance: ADALIMUMAB
     Route: 058
     Dates: start: 20101001
  3. ALLOPURINOL [Concomitant]
     Active Substance: ALLOPURINOL
     Indication: Renal lithiasis prophylaxis
  4. CITALOPRAM [Concomitant]
     Active Substance: CITALOPRAM
     Indication: Anxiety

REACTIONS (6)
  - Renal failure [Recovering/Resolving]
  - Nephrolithiasis [Recovered/Resolved]
  - Renal disorder [Recovered/Resolved]
  - Dyspepsia [Recovered/Resolved]
  - Diarrhoea [Not Recovered/Not Resolved]
  - Urinary retention [Recovered/Resolved]

NARRATIVE: CASE EVENT DATE: 20180101
